FAERS Safety Report 5448200-6 (Version None)
Quarter: 2007Q3

REPORT INFORMATION
  Report Type: 
  Country: None (occurrence: None)
  Receive Date: 20070906
  Receipt Date: 20070906
  Transmission Date: 20080115
  Serious: Yes (Hospitalization)
  Sender: FDA-Public Use
  Company Number: None

PATIENT
  Sex: Female
  Weight: 124 kg

DRUGS (18)
  1. MINOCYCLINE HYDROCHLORIDE [Suspect]
     Indication: DISEASE RECURRENCE
     Dosage: 100 MG DAILY PO
     Route: 048
     Dates: start: 20070708, end: 20070711
  2. MINOCYCLINE HYDROCHLORIDE [Suspect]
     Indication: INFECTION
     Dosage: 100 MG DAILY PO
     Route: 048
     Dates: start: 20070708, end: 20070711
  3. TORSEMIDE [Concomitant]
  4. SPIRANOLACTONE/HCTZ [Concomitant]
  5. POTASSIUM CHLORIDE [Concomitant]
  6. METOLAZONE [Concomitant]
  7. LEVOTHYROXINE SODIUM [Concomitant]
  8. PORCINE HEPARIN [Concomitant]
  9. FUROSEMIDE [Concomitant]
  10. CILOSTAZOL [Concomitant]
  11. CALCIUM CARBONATE [Concomitant]
  12. ATORVASTATIN CALCIUM [Concomitant]
  13. ALLOPURINOL [Concomitant]
  14. ALBUMIN (HUMAN) [Concomitant]
  15. ZOLPIDEM TARTRATE [Concomitant]
  16. WARFARIN SODIUM [Concomitant]
  17. ACETAMINOPHEN AND HYDROCODONE BITARTRATE [Concomitant]
  18. NYSTATIN [Concomitant]

REACTIONS (2)
  - DYSPNOEA [None]
  - OEDEMA PERIPHERAL [None]
